FAERS Safety Report 15329260 (Version 3)
Quarter: 2018Q4

REPORT INFORMATION
  Report Type: Not Available
  Country: US (occurrence: US)
  Receive Date: 20180829
  Receipt Date: 20181211
  Transmission Date: 20190204
  Serious: Yes (Hospitalization)
  Sender: FDA-Public Use
  Company Number: US-NEUROCRINE BIOSCIENCES INC.-2018NBI02435

PATIENT
  Age: 66 Year
  Sex: Female

DRUGS (52)
  1. INGREZZA [Suspect]
     Active Substance: VALBENAZINE
     Indication: TARDIVE DYSKINESIA
     Route: 048
     Dates: start: 20180627, end: 2018
  2. GLYCERIN ADULT SUPPOSITORY [Concomitant]
     Dosage: PRN
     Route: 054
  3. LACTULOSE. [Concomitant]
     Active Substance: LACTULOSE
     Dosage: 10 G/15 ML, BEDTIME PRN
     Route: 048
  4. MAGNESIUM OXIDE. [Concomitant]
     Active Substance: MAGNESIUM OXIDE
     Route: 048
  5. IMITREX [Concomitant]
     Active Substance: SUMATRIPTAN SUCCINATE
     Dosage: AS DIRECTED
     Route: 048
  6. TRAZODONE [Concomitant]
     Active Substance: TRAZODONE HYDROCHLORIDE
     Dosage: AT BEDTIME
     Route: 048
  7. BENZTROPINE. [Concomitant]
     Active Substance: BENZTROPINE
     Route: 048
  8. IPRATROPIUM-ALBUTEROL [Concomitant]
     Active Substance: ALBUTEROL\IPRATROPIUM
     Dosage: 0.5 MG-3 MG (2.5 MG BASE)/3 ML NEBULIZATION SOL; 3 ML INHALATION 6H PRN
  9. SELENIUM SULFIDE. [Concomitant]
     Active Substance: SELENIUM SULFIDE
     Dosage: DAILY
     Route: 061
  10. VITAMIN E [Concomitant]
     Active Substance: .ALPHA.-TOCOPHEROL
     Route: 048
  11. CYMBALTA [Concomitant]
     Active Substance: DULOXETINE HYDROCHLORIDE
     Route: 048
  12. VISTARIL [Concomitant]
     Active Substance: HYDROXYZINE PAMOATE
     Route: 048
  13. LORAZEPAM. [Concomitant]
     Active Substance: LORAZEPAM
     Dosage: PRN
     Route: 048
  14. MS CONTIN [Concomitant]
     Active Substance: MORPHINE SULFATE
     Dosage: EXTENDED RELEASE
     Route: 048
  15. PERCOCET [Concomitant]
     Active Substance: ACETAMINOPHEN\OXYCODONE HYDROCHLORIDE
     Dosage: OXYCODONE 5 MG-ACETAMINOPHEN 325 MG, 2 TABS PRN
     Route: 048
  16. REQUIP [Concomitant]
     Active Substance: ROPINIROLE HYDROCHLORIDE
     Route: 048
  17. FLUOXETINE [Concomitant]
     Active Substance: FLUOXETINE HYDROCHLORIDE
     Indication: DEPRESSION
     Dosage: IN THE MORNING
     Route: 048
  18. NEXIUM [Concomitant]
     Active Substance: ESOMEPRAZOLE MAGNESIUM
     Dosage: DELAYED RELEASE
     Route: 048
  19. CLARITIN-D NOS [Concomitant]
     Active Substance: LORATADINE\PSEUDOEPHEDRINE SULFATE
     Dosage: LORATADINE 5 MG-PSEUDOEPHEDRINE ER 120 MG; EXTENDED RELEASE, 12 HR
     Route: 048
  20. ALEVE [Concomitant]
     Active Substance: NAPROXEN SODIUM
     Indication: PAIN
     Dosage: 220 MG EVERY HS, ONCE DAILY PRN EVERY 8 HRS BETWEEN SCHEDULED DOSE AND PRN DOSE
     Route: 048
  21. SENNA PLUS [Concomitant]
     Active Substance: DOCUSATE SODIUM\SENNOSIDES\SENNOSIDES A AND B
     Dosage: SENNOSIDES 8.6 MG, DOCUSATE 50 MG, 2 TABS DAILY
     Route: 048
  22. VITAMIN D3 [Concomitant]
     Active Substance: CHOLECALCIFEROL
     Route: 048
  23. LEVOTHYROXINE. [Concomitant]
     Active Substance: LEVOTHYROXINE
     Route: 048
  24. PREDNISONE. [Concomitant]
     Active Substance: PREDNISONE
     Dosage: BEDTIME
     Route: 048
  25. ATENOLOL. [Concomitant]
     Active Substance: ATENOLOL
     Indication: AKATHISIA
     Route: 048
  26. BUPROPION HYDROCHLORIDE XL [Concomitant]
     Active Substance: BUPROPION HYDROCHLORIDE
     Dosage: IN THE MORNING
     Route: 048
  27. CITRACAL [Concomitant]
     Active Substance: CALCIUM CITRATE
     Route: 048
  28. RISPERIDONE. [Suspect]
     Active Substance: RISPERIDONE
     Indication: PRODUCT USED FOR UNKNOWN INDICATION
     Dosage: AT BEDTIME
     Route: 048
  29. REQUIP [Concomitant]
     Active Substance: ROPINIROLE HYDROCHLORIDE
     Dosage: AT BEDTIME
     Route: 048
  30. CLONAZEPAM. [Concomitant]
     Active Substance: CLONAZEPAM
     Indication: ANXIETY
     Route: 048
  31. TRAZODONE [Concomitant]
     Active Substance: TRAZODONE HYDROCHLORIDE
     Indication: INSOMNIA
     Dosage: AT BEDTIME
     Route: 048
  32. TYLENOL [Concomitant]
     Active Substance: ACETAMINOPHEN
     Indication: PYREXIA
     Dosage: 650 MG EVERY 4-6 HRS PRN (NOT EXCEED 3000 MG IN A 24 HR PERIOD)
     Route: 048
  33. BENZTROPINE. [Concomitant]
     Active Substance: BENZTROPINE
     Dosage: AT BEDTIME
     Route: 048
  34. POLYETHYLENE GLYCOL 3350. [Concomitant]
     Active Substance: POLYETHYLENE GLYCOL 3350
     Dosage: 17 GRAMS PRN
     Route: 048
  35. ADDERALL XR [Concomitant]
     Active Substance: AMPHETAMINE ASPARTATE\AMPHETAMINE SULFATE\DEXTROAMPHETAMINE SACCHARATE\DEXTROAMPHETAMINE SULFATE
     Route: 048
  36. LITHIUM CARBONATE. [Concomitant]
     Active Substance: LITHIUM CARBONATE
     Route: 048
  37. SKELAXIN [Concomitant]
     Active Substance: METAXALONE
     Route: 048
  38. PATADAY [Concomitant]
     Active Substance: OLOPATADINE HYDROCHLORIDE
     Dosage: EACH EYE DAILY
     Route: 047
  39. ATENOLOL. [Concomitant]
     Active Substance: ATENOLOL
     Indication: AKATHISIA
     Route: 048
  40. CLONAZEPAM. [Concomitant]
     Active Substance: CLONAZEPAM
     Indication: AKATHISIA
  41. TYLENOL [Concomitant]
     Active Substance: ACETAMINOPHEN
     Indication: PAIN
  42. COLACE [Concomitant]
     Active Substance: DOCUSATE SODIUM
     Route: 048
  43. COUMADIN [Concomitant]
     Active Substance: WARFARIN SODIUM
     Dosage: BEDTIME
     Route: 048
  44. INGREZZA [Suspect]
     Active Substance: VALBENAZINE
     Route: 048
     Dates: start: 20180704
  45. SEROQUEL [Concomitant]
     Active Substance: QUETIAPINE FUMARATE
     Indication: THINKING ABNORMAL
     Dosage: AT BEDTIME
     Route: 048
  46. ASPIRIN-ACETAMINOPHEN-CAFFEINE [Concomitant]
     Dosage: 250-250-65 MG, TAKE 2 TABLETS EVERY AM, THEN 2 TABS PRN EVERY 6 HRS BETWEEN SCHEDULED AND PRN DOSE
     Route: 048
  47. CLARITIN-D NOS [Concomitant]
     Active Substance: LORATADINE\PSEUDOEPHEDRINE SULFATE
     Dosage: LORATADINE ER 10 MG-PSEUDOEPHEDRINE 240 MG, EXTENDED RELEASE 24 HR; PRN
     Route: 048
  48. MULTIVITAMIN [Concomitant]
     Active Substance: VITAMINS
     Route: 048
  49. CALCIUM CARBONATE-VITAMIN D3 [Concomitant]
     Dosage: CALCIUM 600, VITAMIN D3-600 (1500 MG)-400 UNIT
     Route: 048
  50. CARAFATE [Concomitant]
     Active Substance: SUCRALFATE
     Route: 048
  51. NEXIUM [Concomitant]
     Active Substance: ESOMEPRAZOLE MAGNESIUM
     Dosage: DELAYED RELEASE
     Route: 048
  52. PROPRANOLOL [Concomitant]
     Active Substance: PROPRANOLOL HYDROCHLORIDE
     Route: 048

REACTIONS (12)
  - Fatigue [Unknown]
  - Drug ineffective [None]
  - Akathisia [Unknown]
  - Dysarthria [Unknown]
  - Parkinsonian gait [Recovered/Resolved]
  - Fall [Unknown]
  - Tardive dyskinesia [Unknown]
  - Dizziness [Unknown]
  - Vision blurred [Unknown]
  - Dry mouth [Unknown]
  - Dyskinesia [Recovering/Resolving]
  - Somnolence [Unknown]

NARRATIVE: CASE EVENT DATE: 2018
